FAERS Safety Report 13651940 (Version 1)
Quarter: 2017Q2

REPORT INFORMATION
  Report Type: Spontaneous
  Country: FR (occurrence: FR)
  Receive Date: 20170614
  Receipt Date: 20170614
  Transmission Date: 20170830
  Serious: Yes (Hospitalization)
  Sender: FDA-Public Use
  Company Number: FR-FRESENIUS KABI-FK201705114

PATIENT
  Age: 36 Year
  Sex: Male

DRUGS (3)
  1. GEMCITABINE [Suspect]
     Active Substance: GEMCITABINE\GEMCITABINE HYDROCHLORIDE
     Indication: PENILE SQUAMOUS CELL CARCINOMA
     Route: 065
  2. GEMCITABINE [Suspect]
     Active Substance: GEMCITABINE\GEMCITABINE HYDROCHLORIDE
     Route: 065
  3. GEMCITABINE [Suspect]
     Active Substance: GEMCITABINE\GEMCITABINE HYDROCHLORIDE
     Route: 065

REACTIONS (8)
  - Thrombocytopenia [Unknown]
  - Enteritis [Unknown]
  - Scrotal oedema [Unknown]
  - Retroperitoneal fibrosis [Unknown]
  - Rectal stenosis [Unknown]
  - Medication error [Unknown]
  - Off label use [Unknown]
  - Skin reaction [Unknown]
